FAERS Safety Report 5969071-5 (Version None)
Quarter: 2008Q4

REPORT INFORMATION
  Report Type: 
  Country: None (occurrence: None)
  Receive Date: 20081126
  Receipt Date: 20080815
  Transmission Date: 20090506
  Serious: No
  Sender: FDA-Public Use
  Company Number: US-ABBOTT-08P-163-0465282-00

PATIENT
  Sex: Male
  Weight: 143.01 kg

DRUGS (5)
  1. SIMCOR [Suspect]
     Indication: BLOOD CHOLESTEROL INCREASED
     Route: 048
     Dates: start: 20080630
  2. VENLAFAXINE HCL [Concomitant]
     Indication: ANXIETY
     Route: 048
  3. METHYLPHENIDATE HCL [Concomitant]
     Indication: ATTENTION DEFICIT/HYPERACTIVITY DISORDER
     Route: 048
  4. BENICAR HYDROCHLOROTHYAZIDE [Concomitant]
     Indication: BLOOD PRESSURE
     Route: 048
  5. DIAZEPAM [Concomitant]
     Indication: INSOMNIA
     Route: 048

REACTIONS (2)
  - FEELING HOT [None]
  - FLUSHING [None]
